FAERS Safety Report 18677310 (Version 1)
Quarter: 2020Q4

REPORT INFORMATION
  Report Type: Spontaneous
  Country: US (occurrence: US)
  Receive Date: 20201229
  Receipt Date: 20201229
  Transmission Date: 20210114
  Serious: Yes (Disabling, Other)
  Sender: FDA-Public Use
  Company Number: US-SA-2020SA369423

PATIENT

DRUGS (1)
  1. LANTUS SOLOSTAR [Suspect]
     Active Substance: INSULIN GLARGINE
     Indication: TYPE 2 DIABETES MELLITUS
     Dosage: 20 IU AT AM (MORNING) AND 25 IU AT PM (EVENING OR NIGHT), BID
     Route: 065
     Dates: start: 2015

REACTIONS (2)
  - Inappropriate schedule of product administration [Unknown]
  - Blindness [Unknown]

NARRATIVE: CASE EVENT DATE: 2015
